FAERS Safety Report 4832571-5 (Version None)
Quarter: 2005Q4

REPORT INFORMATION
  Report Type: 
  Country: None (occurrence: None)
  Receive Date: 20051121
  Receipt Date: 20050517
  Transmission Date: 20060501
  Serious: Yes (Hospitalization, Other)
  Sender: FDA-Public Use
  Company Number: AR-NOVOPROD-244317

PATIENT
  Age: 14 Year
  Sex: Male

DRUGS (2)
  1. NOVOSEVEN [Suspect]
     Indication: TRAUMATIC HAEMORRHAGE
     Dosage: 150 UG/KG, 2 DOSES 2.30 HOURS APART
  2. NOVOSEVEN [Suspect]
     Dosage: 68 UG/KG, 11 HOURS AFTER SECOND DOSE

REACTIONS (4)
  - COMPARTMENT SYNDROME [None]
  - ENTEROCUTANEOUS FISTULA [None]
  - GASTROINTESTINAL NECROSIS [None]
  - INTESTINAL ISCHAEMIA [None]
